FAERS Safety Report 5619807-8 (Version None)
Quarter: 2008Q1

REPORT INFORMATION
  Report Type: 
  Country: None (occurrence: None)
  Receive Date: 20080208
  Receipt Date: 20080130
  Transmission Date: 20080703
  Serious: Yes (Other)
  Sender: FDA-Public Use
  Company Number: PHBS2007JP13424

PATIENT
  Age: 61 Year
  Sex: Female
  Weight: 46 kg

DRUGS (8)
  1. GLEEVEC [Suspect]
     Indication: ACUTE LYMPHOCYTIC LEUKAEMIA
     Dosage: 600 MG/D
     Route: 048
     Dates: start: 20070803
  2. CYCLOPHOSPHAMIDE [Concomitant]
     Dosage: 800 MG/M2, UNK
     Route: 042
     Dates: start: 20070701
  3. DAUNOMYCIN [Concomitant]
     Dosage: 30 MG/M2, UNK
     Route: 042
     Dates: start: 20070701
  4. VINCRISTINE SULFATE [Concomitant]
     Dosage: 1.3 MG/M2, UNK
     Route: 042
     Dates: start: 20070701
  5. PREDNISOLONE [Concomitant]
     Dosage: 60 MG/M2, UNK
     Route: 048
     Dates: start: 20070701
  6. MAGMITT KENEI [Concomitant]
     Dosage: 1500 MG/D
     Route: 048
     Dates: start: 20070802
  7. ZYLORIC [Concomitant]
     Dosage: 300 MG/D
     Route: 048
     Dates: start: 20070724, end: 20070830
  8. GASTER [Concomitant]
     Dosage: 20 MG/D
     Route: 048
     Dates: start: 20070724, end: 20070823

REACTIONS (10)
  - BLADDER CATHETERISATION [None]
  - DYSURIA [None]
  - HAEMOGLOBIN DECREASED [None]
  - NEUTROPHIL COUNT DECREASED [None]
  - OEDEMA [None]
  - OLIGURIA [None]
  - PLATELET COUNT DECREASED [None]
  - RED BLOOD CELL COUNT DECREASED [None]
  - WEIGHT INCREASED [None]
  - WHITE BLOOD CELL COUNT DECREASED [None]
